FAERS Safety Report 17243650 (Version 2)
Quarter: 2020Q1

REPORT INFORMATION
  Report Type: Spontaneous
  Country: MY (occurrence: MY)
  Receive Date: 20200107
  Receipt Date: 20200203
  Transmission Date: 20200409
  Serious: Yes (Hospitalization, Other)
  Sender: FDA-Public Use
  Company Number: MY-UCBSA-2020000600

PATIENT
  Age: 62 Year
  Sex: Male

DRUGS (6)
  1. CEFTRIAXONE. [Concomitant]
     Active Substance: CEFTRIAXONE
     Indication: BRAIN ABSCESS
     Dosage: UNKNOWN DOSE
  2. KEPPRA [Suspect]
     Active Substance: LEVETIRACETAM
     Dosage: 250 MILLIGRAM, 2X/DAY (BID)
  3. METRONIDAZOLE. [Concomitant]
     Active Substance: METRONIDAZOLE
     Indication: BRAIN ABSCESS
     Dosage: UNKNOWN DOSE
  4. PHENYTOIN. [Concomitant]
     Active Substance: PHENYTOIN
     Indication: SEIZURE
  5. DEXAMETHASONE. [Concomitant]
     Active Substance: DEXAMETHASONE
     Indication: BRAIN OEDEMA
     Dosage: UNKNOWN DOSE
  6. KEPPRA [Suspect]
     Active Substance: LEVETIRACETAM
     Indication: SEIZURE
     Dosage: 500 MILLIGRAM, 2X/DAY (BID)

REACTIONS (14)
  - Rash maculo-papular [Recovered/Resolved]
  - Renal impairment [Recovered/Resolved]
  - Acute hepatic failure [Recovered/Resolved]
  - Pyrexia [Recovered/Resolved]
  - Acute kidney injury [Recovered/Resolved]
  - Eosinophilia [Recovered/Resolved]
  - Alanine aminotransferase increased [Recovered/Resolved]
  - Eczema [Recovered/Resolved]
  - Coagulopathy [Unknown]
  - Drug reaction with eosinophilia and systemic symptoms [Recovered/Resolved]
  - Lung infiltration [Unknown]
  - Viral rash [Recovered/Resolved]
  - Petechiae [Recovered/Resolved]
  - General physical health deterioration [Recovered/Resolved]
